FAERS Safety Report 4363392-8 (Version None)
Quarter: 2004Q2

REPORT INFORMATION
  Report Type: 
  Country: None (occurrence: None)
  Receive Date: 20040517
  Receipt Date: 20040227
  Transmission Date: 20050107
  Serious: No
  Sender: FDA-Public Use
  Company Number: S04-USA-01567-01

PATIENT
  Age: 78 Year
  Sex: Female

DRUGS (5)
  1. NAMENDA [Suspect]
     Indication: DEMENTIA
     Dates: start: 20040115, end: 20040206
  2. NAMENDA [Suspect]
     Indication: DEMENTIA
     Dosage: 10 MG BID PO
     Route: 048
     Dates: start: 20040207, end: 20040226
  3. NAMENDA [Suspect]
     Indication: DEMENTIA
     Dosage: 5 MG BID PO
     Route: 048
     Dates: start: 20040227, end: 20040301
  4. NAMENDA [Suspect]
     Indication: DEMENTIA
     Dosage: 10 MG BID PO
     Route: 048
     Dates: start: 20040301
  5. MANY MEDICATIONS (NOS) [Concomitant]

REACTIONS (4)
  - CONTUSION [None]
  - FALL [None]
  - HYPERSOMNIA [None]
  - LOSS OF CONSCIOUSNESS [None]
